FAERS Safety Report 4791206-0 (Version None)
Quarter: 2005Q4

REPORT INFORMATION
  Report Type: 
  Country: None (occurrence: None)
  Receive Date: 20051005
  Receipt Date: 20050920
  Transmission Date: 20060501
  Serious: Yes (Hospitalization)
  Sender: FDA-Public Use
  Company Number: 107554ISR

PATIENT
  Age: 51 Year
  Sex: Female

DRUGS (1)
  1. GLATIRAMER ACETATE [Suspect]
     Indication: MULTIPLE SCLEROSIS
     Dosage: 20 MILLIGRAM
     Route: 058
     Dates: start: 20050823, end: 20050902

REACTIONS (17)
  - BACK PAIN [None]
  - CARDIAC FAILURE [None]
  - CHILLS [None]
  - COUGH [None]
  - DIASTOLIC DYSFUNCTION [None]
  - DYSPNOEA [None]
  - ERYTHEMA [None]
  - HEART RATE INCREASED [None]
  - HYPERTENSIVE CRISIS [None]
  - LUNG DISORDER [None]
  - MYOCARDIAL INFARCTION [None]
  - PHARYNGOLARYNGEAL PAIN [None]
  - PLEURAL EFFUSION [None]
  - SKIN DISCOLOURATION [None]
  - TACHYCARDIA [None]
  - VENTRICULAR DYSFUNCTION [None]
  - VENTRICULAR HYPERTROPHY [None]
